FAERS Safety Report 6843518-4 (Version None)
Quarter: 2010Q2

REPORT INFORMATION
  Report Type: 
  Country: None (occurrence: None)
  Receive Date: 20100629
  Receipt Date: 20100514
  Transmission Date: 20101027
  Serious: No
  Sender: FDA-Public Use
  Company Number: US-WYE-H15175910

PATIENT
  Age: 30 Year
  Sex: Female
  Weight: 72.64 kg

DRUGS (2)
  1. PRISTIQ [Suspect]
     Indication: ANXIETY
     Dosage: 50 MG 1X PER 1 DAY, ORAL
     Route: 048
     Dates: start: 20100511
  2. PRISTIQ [Suspect]
     Indication: PANIC DISORDER
     Dosage: 50 MG 1X PER 1 DAY, ORAL
     Route: 048
     Dates: start: 20100511

REACTIONS (5)
  - CONDITION AGGRAVATED [None]
  - INSOMNIA [None]
  - PALPITATIONS [None]
  - SOMNOLENCE [None]
  - UNEVALUABLE EVENT [None]
